FAERS Safety Report 5107252-3 (Version None)
Quarter: 2006Q3

REPORT INFORMATION
  Report Type: 
  Country: None (occurrence: None)
  Receive Date: 20060914
  Receipt Date: 20060831
  Transmission Date: 20061208
  Serious: Yes (Hospitalization)
  Sender: FDA-Public Use
  Company Number: HQWYE392126JUL06

PATIENT
  Age: 24 Year
  Sex: Female

DRUGS (2)
  1. PROTONIX [Suspect]
     Indication: NAUSEA
     Dosage: 40 MG 1X PER 1 DAY, ORAL
     Route: 048
     Dates: start: 20060101
  2. PROTONIX [Suspect]
     Indication: VOMITING
     Dosage: 40 MG 1X PER 1 DAY, ORAL
     Route: 048
     Dates: start: 20060101

REACTIONS (5)
  - DRUG DOSE OMISSION [None]
  - DRUG INEFFECTIVE [None]
  - NAUSEA [None]
  - TREATMENT NONCOMPLIANCE [None]
  - VOMITING [None]
